FAERS Safety Report 9349792 (Version 1)
Quarter: 2013Q2

REPORT INFORMATION
  Report Type: Report from Study
  Country: US (occurrence: US)
  Receive Date: 20130614
  Receipt Date: 20130614
  Transmission Date: 20140414
  Serious: Yes (Hospitalization)
  Sender: FDA-Public Use
  Company Number: US-US-EMD SERONO, INC.-7217498

PATIENT
  Sex: Female

DRUGS (3)
  1. REBIF [Suspect]
     Indication: MULTIPLE SCLEROSIS
     Dates: start: 2003
  2. REBIF [Suspect]
  3. IBUPROFEN [Concomitant]
     Indication: PREMEDICATION

REACTIONS (6)
  - Bone disorder [Unknown]
  - Fall [Unknown]
  - Gait disturbance [Unknown]
  - Scab [Unknown]
  - Asthenia [Unknown]
  - White blood cell count decreased [Unknown]
